FAERS Safety Report 6187945-X (Version None)
Quarter: 2009Q2

REPORT INFORMATION
  Report Type: 
  Country: None (occurrence: None)
  Receive Date: 20090513
  Receipt Date: 20090505
  Transmission Date: 20091009
  Serious: Yes (Death)
  Sender: FDA-Public Use
  Company Number: DE-ROCHE-631698

PATIENT
  Age: 71 Year
  Sex: Female
  Weight: 100 kg

DRUGS (2)
  1. CAPECITABINE [Suspect]
     Dosage: 500 MG (DAY 1-14 EVERY THREE WEEKS)
     Route: 048
     Dates: start: 20081002, end: 20081127
  2. CAPECITABINE [Suspect]
     Dosage: DAY 1-14, EVERY THREE WEEKS.
     Route: 048
     Dates: start: 20090114, end: 20090201

REACTIONS (1)
  - BREAST CANCER METASTATIC [None]
